FAERS Safety Report 8797863 (Version 2)
Quarter: 2012Q4

REPORT INFORMATION
  Report Type: Report from Study
  Country: JP (occurrence: JP)
  Receive Date: 20120920
  Receipt Date: 20121025
  Transmission Date: 20130627
  Serious: Yes (Other)
  Sender: FDA-Public Use
  Company Number: JP-JNJFOC-20120907083

PATIENT
  Age: 70 Year
  Sex: Female
  Weight: 41 kg

DRUGS (19)
  1. SIMPONI [Suspect]
     Indication: RHEUMATOID ARTHRITIS
     Route: 058
     Dates: start: 20120405
  2. SIMPONI [Suspect]
     Indication: RHEUMATOID ARTHRITIS
     Route: 058
     Dates: start: 20120510
  3. SIMPONI [Suspect]
     Indication: RHEUMATOID ARTHRITIS
     Route: 058
     Dates: start: 20120607
  4. SIMPONI [Suspect]
     Indication: RHEUMATOID ARTHRITIS
     Route: 058
     Dates: start: 20120705
  5. SIMPONI [Suspect]
     Indication: RHEUMATOID ARTHRITIS
     Route: 058
     Dates: start: 20120802
  6. SIMPONI [Suspect]
     Indication: RHEUMATOID ARTHRITIS
     Route: 058
     Dates: start: 20120906
  7. SIMPONI [Suspect]
     Indication: RHEUMATOID ARTHRITIS
     Route: 058
     Dates: start: 20120308
  8. LOXONIN [Suspect]
     Indication: RHEUMATOID ARTHRITIS
  9. METHOTREXATE [Concomitant]
     Indication: RHEUMATOID ARTHRITIS
  10. TACROLIMUS HYDRATE [Concomitant]
     Indication: RHEUMATOID ARTHRITIS
     Dates: end: 20120606
  11. TACROLIMUS HYDRATE [Concomitant]
     Indication: RHEUMATOID ARTHRITIS
     Dates: start: 20120607, end: 20120704
  12. SODIUM RABEPRAZOLE [Concomitant]
     Indication: PROPHYLAXIS
     Route: 048
  13. SELBEX [Concomitant]
     Indication: PROPHYLAXIS
     Route: 048
  14. RECALBON [Concomitant]
     Indication: PROPHYLAXIS
     Route: 048
  15. TIZANIDINE [Concomitant]
     Indication: HEADACHE
     Route: 048
  16. DIFENIDOL [Concomitant]
     Indication: HEADACHE
     Route: 048
  17. FAMOTIDINE [Concomitant]
     Indication: PROPHYLAXIS
     Route: 048
  18. AMLODIPINE [Concomitant]
     Indication: HYPERTENSION
     Route: 048
  19. ALDIOXA [Concomitant]
     Indication: PROPHYLAXIS
     Route: 048

REACTIONS (2)
  - Gastric ulcer [Recovering/Resolving]
  - Nasopharyngitis [Recovering/Resolving]
